FAERS Safety Report 8626037-4 (Version None)
Quarter: 2012Q3

REPORT INFORMATION
  Report Type: 
  Country: None (occurrence: None)
  Receive Date: 20120827
  Receipt Date: 20120817
  Transmission Date: 20120928
  Serious: Yes (Other)
  Sender: FDA-Public Use
  Company Number: UY-ABBOTT-12P-168-0970902-00

PATIENT
  Sex: Male

DRUGS (7)
  1. HUMIRA [Suspect]
     Route: 058
     Dates: start: 20120505, end: 20120807
  2. MELOXICAM [Suspect]
     Indication: ANALGESIC THERAPY
     Dosage: ON DEMAND
     Route: 048
  3. WARFARIN SODIUM [Suspect]
     Indication: THROMBOSIS PROPHYLAXIS
     Route: 048
     Dates: start: 20070801
  4. CITALOPRAM HYDROBROMIDE [Concomitant]
     Indication: DEPRESSION
     Route: 048
  5. METHOTREXATE [Concomitant]
     Indication: RHEUMATOID ARTHRITIS
     Route: 048
     Dates: start: 20110912
  6. MELOXICAM [Concomitant]
     Indication: RHEUMATOID ARTHRITIS
     Dosage: ON DEMAND
     Route: 048
  7. HUMIRA [Suspect]
     Indication: RHEUMATOID ARTHRITIS
     Route: 058
     Dates: start: 20110912, end: 20120302

REACTIONS (6)
  - HAEMORRHAGIC ANAEMIA [None]
  - GASTRITIS EROSIVE [None]
  - COLONIC POLYP [None]
  - GASTROINTESTINAL HAEMORRHAGE [None]
  - AORTIC ANEURYSM [None]
  - THROMBOCYTOPENIA [None]
